FAERS Safety Report 17656012 (Version 3)
Quarter: 2020Q2

REPORT INFORMATION
  Report Type: Spontaneous
  Country: US (occurrence: US)
  Receive Date: 20200410
  Receipt Date: 20200617
  Transmission Date: 20200713
  Serious: Yes (Other)
  Sender: FDA-Public Use
  Company Number: US-GLAXOSMITHKLINE-US2020AMR059028

PATIENT
  Sex: Female

DRUGS (1)
  1. ZEJULA [Suspect]
     Active Substance: NIRAPARIB
     Indication: FALLOPIAN TUBE CANCER
     Dosage: 300 MG, QD
     Route: 048
     Dates: start: 20200203

REACTIONS (8)
  - Malignant neoplasm progression [Unknown]
  - Malaise [Recovered/Resolved]
  - Feeling hot [Unknown]
  - Pharyngitis streptococcal [Unknown]
  - Nausea [Unknown]
  - Photosensitivity reaction [Unknown]
  - Social problem [Unknown]
  - Skin burning sensation [Unknown]
